FAERS Safety Report 13936218 (Version 2)
Quarter: 2017Q3

REPORT INFORMATION
  Report Type: Report from Study
  Country: CA (occurrence: CA)
  Receive Date: 20170905
  Receipt Date: 20170911
  Transmission Date: 20171127
  Serious: Yes (Hospitalization, Other)
  Sender: FDA-Public Use
  Company Number: CA-GLAXOSMITHKLINE-CA2017GSK135210

PATIENT
  Age: 66 Year
  Sex: Male

DRUGS (1)
  1. MEPOLIZUMAB [Suspect]
     Active Substance: MEPOLIZUMAB
     Indication: ASTHMA
     Dosage: 100 MG, Z,CYC
     Route: 055

REACTIONS (3)
  - Chest tube insertion [Unknown]
  - Pneumothorax [Recovering/Resolving]
  - Stoma site pain [Unknown]

NARRATIVE: CASE EVENT DATE: 20170828
